FAERS Safety Report 20119898 (Version 1)
Quarter: 2021Q4

REPORT INFORMATION
  Report Type: Spontaneous
  Country: TH (occurrence: TH)
  Receive Date: 20211126
  Receipt Date: 20211126
  Transmission Date: 20220303
  Serious: Yes (Hospitalization, Other)
  Sender: FDA-Public Use
  Company Number: TH-SLATE RUN PHARMACEUTICALS-21TH000791

PATIENT

DRUGS (5)
  1. BUPROPION HYDROCHLORIDE [Interacting]
     Active Substance: BUPROPION HYDROCHLORIDE
     Indication: Product used for unknown indication
     Dosage: UNK
     Route: 048
  2. VORTIOXETINE [Interacting]
     Active Substance: VORTIOXETINE
     Indication: Product used for unknown indication
     Dosage: UNK
     Route: 048
  3. LAMOTRIGINE [Interacting]
     Active Substance: LAMOTRIGINE
     Indication: Product used for unknown indication
     Dosage: UNK
     Route: 048
  4. LURASIDONE [Interacting]
     Active Substance: LURASIDONE
     Indication: Product used for unknown indication
     Dosage: UNK
     Route: 048
  5. ESCITALOPRAM [Interacting]
     Active Substance: ESCITALOPRAM OXALATE
     Indication: Product used for unknown indication
     Dosage: UNK
     Route: 048

REACTIONS (9)
  - Serotonin syndrome [Unknown]
  - Encephalopathy [Recovered/Resolved]
  - Anticholinergic syndrome [Unknown]
  - Neuroleptic malignant syndrome [Unknown]
  - Pneumonia aspiration [Recovering/Resolving]
  - Drug interaction [Unknown]
  - Overdose [Unknown]
  - Rhabdomyolysis [Recovering/Resolving]
  - Amnesia [Unknown]
